FAERS Safety Report 9698148 (Version 1)
Quarter: 2013Q4

REPORT INFORMATION
  Report Type: Spontaneous
  Country: US (occurrence: US)
  Receive Date: 20131120
  Receipt Date: 20131120
  Transmission Date: 20140711
  Serious: No
  Sender: FDA-Public Use
  Company Number: US-PFIZER INC-2013328876

PATIENT
  Age: 29 Year
  Sex: Male

DRUGS (1)
  1. VIAGRA [Suspect]
     Indication: SUBSTANCE USE
     Dosage: 2 DF, UNK
     Dates: start: 2007

REACTIONS (2)
  - Intentional drug misuse [Unknown]
  - Headache [Recovered/Resolved]
